FAERS Safety Report 25524283 (Version 3)
Quarter: 2025Q3

REPORT INFORMATION
  Report Type: Spontaneous
  Country: JP (occurrence: JP)
  Receive Date: 20250707
  Receipt Date: 20250804
  Transmission Date: 20251021
  Serious: Yes (Other)
  Sender: MERCK SHARP & DOHME LLC
  Company Number: JP-009507513-2300740

PATIENT
  Age: 7 Decade
  Sex: Female

DRUGS (4)
  1. KEYTRUDA [Suspect]
     Active Substance: PEMBROLIZUMAB
     Indication: Uterine cancer
     Dosage: TREATMENT LINE: POST-FIRST LINE.
     Route: 042
     Dates: start: 20250602, end: 20250602
  2. KEYTRUDA [Suspect]
     Active Substance: PEMBROLIZUMAB
     Indication: Uterine cancer
     Route: 042
     Dates: start: 20250717
  3. LENVATINIB MESYLATE [Suspect]
     Active Substance: LENVATINIB MESYLATE
     Indication: Uterine cancer
     Dosage: STRENGTH: 10 MG
     Route: 048
     Dates: start: 202507
  4. LENVATINIB MESYLATE [Suspect]
     Active Substance: LENVATINIB MESYLATE
     Indication: Uterine cancer
     Dosage: STRENGTH: 10 MG; TREATMENT LINE: POST-FIRST LINE.
     Route: 048
     Dates: start: 20250602, end: 20250619

REACTIONS (6)
  - Dysphonia [Recovered/Resolved]
  - Hyperthyroidism [Recovered/Resolved]
  - Dysphonia [Unknown]
  - Drug eruption [Recovering/Resolving]
  - Beta haemolytic streptococcal infection [Recovered/Resolved]
  - Aphonia [Unknown]

NARRATIVE: CASE EVENT DATE: 20250601
